FAERS Safety Report 6483216-2 (Version None)
Quarter: 2009Q4

REPORT INFORMATION
  Report Type: 
  Country: None (occurrence: None)
  Receive Date: 20091208
  Receipt Date: 20091208
  Transmission Date: 20100525
  Serious: No
  Sender: FDA-Public Use
  Company Number: None

PATIENT
  Age: 50 Year
  Sex: Female

DRUGS (1)
  1. ZOLPIDEM 10MG MYLAN 10MG QHS PRN PO [Suspect]
     Indication: INSOMNIA
     Dosage: 10MG QHS PRN PO
     Route: 048
     Dates: start: 20080201

REACTIONS (3)
  - DRUG INEFFECTIVE [None]
  - EMOTIONAL DISORDER [None]
  - PRODUCT SUBSTITUTION ISSUE [None]
